FAERS Safety Report 4900856-X (Version None)
Quarter: 2006Q1

REPORT INFORMATION
  Report Type: 
  Country: None (occurrence: None)
  Receive Date: 20060201
  Receipt Date: 20060117
  Transmission Date: 20060701
  Serious: Yes (Hospitalization, Other)
  Sender: FDA-Public Use
  Company Number: DE-2006-001359

PATIENT
  Age: 65 Year
  Sex: Female
  Weight: 85 kg

DRUGS (5)
  1. SOTALOL HCL [Suspect]
     Indication: HYPERTENSION
  2. HYDROCHLOROTHIAZIDE [Suspect]
     Indication: HYPERTENSION
  3. VALSARTAN [Suspect]
     Indication: HYPERTENSION
  4. FELODIPINE [Suspect]
     Indication: HYPERTENSION
  5. RESERPINE [Suspect]
     Indication: HYPERTENSION

REACTIONS (13)
  - ANGINA PECTORIS [None]
  - AORTIC VALVE SCLEROSIS [None]
  - BLOOD CHOLESTEROL INCREASED [None]
  - BUNDLE BRANCH BLOCK RIGHT [None]
  - CARDIAC MURMUR [None]
  - CARDIOMEGALY [None]
  - HYPERTENSIVE CRISIS [None]
  - INTERRUPTION OF AORTIC ARCH [None]
  - LOW DENSITY LIPOPROTEIN INCREASED [None]
  - OEDEMA PERIPHERAL [None]
  - PULSE ABSENT [None]
  - REFUSAL OF TREATMENT BY PATIENT [None]
  - VENTRICULAR HYPERTROPHY [None]
